FAERS Safety Report 16011619 (Version 1)
Quarter: 2019Q1

REPORT INFORMATION
  Report Type: Spontaneous
  Country: US (occurrence: US)
  Receive Date: 20190227
  Receipt Date: 20190227
  Transmission Date: 20190418
  Serious: No
  Sender: FDA-Public Use
  Company Number: US-PFIZER INC-2019027859

PATIENT
  Age: 59 Year
  Sex: Female

DRUGS (1)
  1. FLECTOR [Suspect]
     Active Substance: DICLOFENAC EPOLAMINE
     Indication: WRIST FRACTURE
     Dosage: UNK

REACTIONS (3)
  - Influenza [Unknown]
  - Drug effective for unapproved indication [Unknown]
  - Migraine [Unknown]

NARRATIVE: CASE EVENT DATE: 20190207
